FAERS Safety Report 17593337 (Version 1)
Quarter: 2020Q1

REPORT INFORMATION
  Report Type: Spontaneous
  Country: SG (occurrence: SG)
  Receive Date: 20200327
  Receipt Date: 20200327
  Transmission Date: 20200409
  Serious: Yes (Other)
  Sender: FDA-Public Use
  Company Number: SG-CELGENEUS-SGP-20200309306

PATIENT
  Age: 49 Year
  Sex: Male

DRUGS (1)
  1. LENALIDOMIDE [Suspect]
     Active Substance: LENALIDOMIDE
     Indication: PRODUCT USED FOR UNKNOWN INDICATION
     Route: 048

REACTIONS (3)
  - Swelling face [Unknown]
  - Eosinophilia [Unknown]
  - Rash [Unknown]

NARRATIVE: CASE EVENT DATE: 20200218
